FAERS Safety Report 25503551 (Version 1)
Quarter: 2025Q3

REPORT INFORMATION
  Report Type: Spontaneous
  Country: EU (occurrence: EU)
  Receive Date: 20250702
  Receipt Date: 20250702
  Transmission Date: 20251021
  Serious: Yes (Other)
  Sender: MYLAN
  Company Number: EU-MYLANLABS-2025M1054994

PATIENT
  Weight: 0.59 kg

DRUGS (16)
  1. DOXORUBICIN [Suspect]
     Active Substance: DOXORUBICIN
     Indication: Ewing^s sarcoma
  2. DOXORUBICIN [Suspect]
     Active Substance: DOXORUBICIN
  3. DOXORUBICIN [Suspect]
     Active Substance: DOXORUBICIN
     Route: 064
  4. DOXORUBICIN [Suspect]
     Active Substance: DOXORUBICIN
     Route: 064
  5. DOXORUBICIN [Suspect]
     Active Substance: DOXORUBICIN
  6. DOXORUBICIN [Suspect]
     Active Substance: DOXORUBICIN
  7. DOXORUBICIN [Suspect]
     Active Substance: DOXORUBICIN
     Route: 064
  8. DOXORUBICIN [Suspect]
     Active Substance: DOXORUBICIN
     Route: 064
  9. IFOSFAMIDE [Suspect]
     Active Substance: IFOSFAMIDE
     Indication: Ewing^s sarcoma
  10. IFOSFAMIDE [Suspect]
     Active Substance: IFOSFAMIDE
  11. IFOSFAMIDE [Suspect]
     Active Substance: IFOSFAMIDE
     Route: 064
  12. IFOSFAMIDE [Suspect]
     Active Substance: IFOSFAMIDE
     Route: 064
  13. IFOSFAMIDE [Suspect]
     Active Substance: IFOSFAMIDE
  14. IFOSFAMIDE [Suspect]
     Active Substance: IFOSFAMIDE
  15. IFOSFAMIDE [Suspect]
     Active Substance: IFOSFAMIDE
     Route: 064
  16. IFOSFAMIDE [Suspect]
     Active Substance: IFOSFAMIDE
     Route: 064

REACTIONS (3)
  - Foetal growth restriction [Unknown]
  - Premature baby [Unknown]
  - Foetal exposure during pregnancy [Recovered/Resolved]
